FAERS Safety Report 25763982 (Version 1)
Quarter: 2025Q3

REPORT INFORMATION
  Report Type: Report from Study
  Country: US (occurrence: US)
  Receive Date: 20250905
  Receipt Date: 20250905
  Transmission Date: 20251020
  Serious: Yes (Hospitalization, Other)
  Sender: HELSINN HEALTHCARE
  Company Number: US-HBP-2024US030586

PATIENT
  Sex: Male

DRUGS (13)
  1. VALCHLOR [Suspect]
     Active Substance: MECHLORETHAMINE
     Indication: Cutaneous T-cell lymphoma
     Dosage: THIN FILM ONCE DAILY ON ? OF HIS BODY
     Route: 061
  2. VALCHLOR [Suspect]
     Active Substance: MECHLORETHAMINE
     Route: 061
  3. VALCHLOR [Suspect]
     Active Substance: MECHLORETHAMINE
     Route: 061
  4. VALCHLOR [Suspect]
     Active Substance: MECHLORETHAMINE
     Route: 061
     Dates: start: 20240308
  5. VALCHLOR [Suspect]
     Active Substance: MECHLORETHAMINE
     Dosage: UNK, QD
     Route: 061
  6. PFIZER-BIONTECH COVID-19 VACCINE [Suspect]
     Active Substance: TOZINAMERAN
     Indication: Paraesthesia
     Dates: start: 202104
  7. PFIZER-BIONTECH COVID-19 VACCINE [Suspect]
     Active Substance: TOZINAMERAN
     Indication: Rash macular
  8. PFIZER-BIONTECH COVID-19 VACCINE [Suspect]
     Active Substance: TOZINAMERAN
     Indication: Skin exfoliation
  9. TRIAMCINOLONE [Concomitant]
     Active Substance: TRIAMCINOLONE
     Indication: Cutaneous T-cell lymphoma
     Dosage: VALCHLOR WAS USED DAILY ON ? OF HIS BODY [ON HIS MYCOSIS FUNGOIDES SPOTS] AND THE OTHER ? OF HIS BOD
  10. CLOPIDOGREL [Concomitant]
     Active Substance: CLOPIDOGREL BISULFATE
  11. METOPROLOL [Concomitant]
     Active Substance: METOPROLOL
  12. AMIODARONE [Concomitant]
     Active Substance: AMIODARONE
  13. NEXLIZET [Concomitant]
     Active Substance: BEMPEDOIC ACID\EZETIMIBE

REACTIONS (10)
  - Viral infection [Unknown]
  - Cutaneous T-cell lymphoma recurrent [Not Recovered/Not Resolved]
  - Intentional product use issue [Unknown]
  - Off label use [Unknown]
  - Paraesthesia [Unknown]
  - Skin exfoliation [Recovered/Resolved]
  - Condition aggravated [Recovered/Resolved]
  - Application site erythema [Recovered/Resolved]
  - Rash macular [Recovered/Resolved]
  - Eczema [Unknown]

NARRATIVE: CASE EVENT DATE: 20210101
